FAERS Safety Report 16997072 (Version 1)
Quarter: 2019Q4

REPORT INFORMATION
  Report Type: Spontaneous
  Country: US (occurrence: US)
  Receive Date: 20190923
  Receipt Date: 20190923
  Transmission Date: 20200122
  Serious: Yes (Hospitalization)
  Sender: FDA-Public Use
  Company Number: None

PATIENT
  Age: 69 Year
  Sex: Male
  Weight: 58.51 kg

DRUGS (1)
  1. NIVOLUMAB [Suspect]
     Active Substance: NIVOLUMAB
     Indication: NON-SMALL CELL LUNG CANCER METASTATIC
     Route: 042
     Dates: start: 20180713, end: 20190301

REACTIONS (14)
  - Drug eruption [None]
  - Retching [None]
  - Blood bilirubin increased [None]
  - Aspartate aminotransferase increased [None]
  - Drug-induced liver injury [None]
  - Productive cough [None]
  - Vomiting [None]
  - Cholestasis [None]
  - Asthenia [None]
  - Nausea [None]
  - Hepatocellular injury [None]
  - Sputum discoloured [None]
  - Blood alkaline phosphatase increased [None]
  - Alanine aminotransferase increased [None]

NARRATIVE: CASE EVENT DATE: 20190502
